FAERS Safety Report 23436213 (Version 1)
Quarter: 2024Q1

REPORT INFORMATION
  Report Type: Spontaneous
  Country: JP (occurrence: JP)
  Receive Date: 20240124
  Receipt Date: 20240124
  Transmission Date: 20240410
  Serious: Yes (Death, Life-Threatening, Other)
  Sender: FDA-Public Use
  Company Number: JP-TEVA-VS-3147975

PATIENT
  Age: 11 Decade
  Weight: 30.5 kg

DRUGS (4)
  1. CERCINE [Suspect]
     Active Substance: DIAZEPAM
     Indication: Sedative therapy
     Dosage: THE SECOND DOSE WAS ADMINISTERED 17 MINUTES AFTER THE FIRST DOSE.?TOTAL 10MG.
     Route: 030
     Dates: start: 20231219
  2. CERCINE [Suspect]
     Active Substance: DIAZEPAM
     Indication: Sedative therapy
     Dosage: THE SECOND DOSE WAS ADMINISTERED 17 MINUTES AFTER THEFIRST DOSE. TOTAL 10MG.
     Route: 030
     Dates: start: 20231219
  3. ELNEOPA-NF No.2 Injection 1000mL [Concomitant]
     Dosage: DOSAGE IS UNKNOWN
     Route: 042
     Dates: start: 20231107, end: 20231219
  4. MINOCYCLINE HYDROCHLORIDE TABLETS 50mg^TOWA^ [Concomitant]
     Route: 048
     Dates: start: 20231205, end: 20231219

REACTIONS (4)
  - Respiratory depression [Fatal]
  - Respiratory arrest [Fatal]
  - Cardiac arrest [Fatal]
  - Drug ineffective [Unknown]

NARRATIVE: CASE EVENT DATE: 20231219
